FAERS Safety Report 16457954 (Version 1)
Quarter: 2019Q2

REPORT INFORMATION
  Report Type: Spontaneous
  Country: US (occurrence: US)
  Receive Date: 20190620
  Receipt Date: 20190620
  Transmission Date: 20190711
  Serious: No
  Sender: FDA-Public Use
  Company Number: US-PFIZER INC-2019260808

PATIENT
  Age: 48 Year
  Sex: Female
  Weight: 56.51 kg

DRUGS (2)
  1. AZITHROMYCIN ANHYDROUS. [Concomitant]
     Active Substance: AZITHROMYCIN ANHYDROUS
     Dosage: UNK (250 MG TABLET TAKE 2 TABLET(S) BY MOUTH ON DAY 1 THEN 1 TABLET EVERY DAY FOR THE NEXT 4 DAYS)
     Route: 048
  2. LEVOXYL [Suspect]
     Active Substance: LEVOTHYROXINE SODIUM
     Indication: HYPOTHYROIDISM
     Dosage: UNK

REACTIONS (4)
  - Blood thyroid stimulating hormone increased [Unknown]
  - Menopausal symptoms [Recovered/Resolved]
  - Memory impairment [Unknown]
  - Fatigue [Unknown]

NARRATIVE: CASE EVENT DATE: 2019
